FAERS Safety Report 17307586 (Version 1)
Quarter: 2020Q1

REPORT INFORMATION
  Report Type: Spontaneous
  Country: FR (occurrence: FR)
  Receive Date: 20200123
  Receipt Date: 20200123
  Transmission Date: 20200409
  Serious: Yes (Hospitalization, Congenital Anomaly)
  Sender: FDA-Public Use
  Company Number: FR-TEVA-2020-FR-1171331

PATIENT
  Age: 66 Year
  Sex: Female
  Weight: 93 kg

DRUGS (2)
  1. CARBOPLATINE [Suspect]
     Active Substance: CARBOPLATIN
     Indication: LUNG NEOPLASM MALIGNANT
     Dosage: DOSE UNITAIRE , (463 MG)
     Route: 041
     Dates: start: 20191122, end: 20191122
  2. PACLITAXEL. [Suspect]
     Active Substance: PACLITAXEL
     Indication: LUNG NEOPLASM MALIGNANT
     Dosage: DOSE UNITAIRE (234 MG)
     Route: 041
     Dates: start: 20191122, end: 20191122

REACTIONS (1)
  - Aplasia [Recovering/Resolving]

NARRATIVE: CASE EVENT DATE: 20191129
